FAERS Safety Report 4704417-7 (Version None)
Quarter: 2005Q2

REPORT INFORMATION
  Report Type: 
  Country: None (occurrence: None)
  Receive Date: 20050624
  Receipt Date: 20050624
  Transmission Date: 20051028
  Serious: Yes (Other)
  Sender: FDA-Public Use
  Company Number: None

PATIENT
  Age: 46 Year
  Sex: Female
  Weight: 59.8748 kg

DRUGS (1)
  1. TRAZODONE [Suspect]
     Indication: INSOMNIA
     Dosage: 50 MG PO @ HS
     Route: 048
     Dates: start: 20050401

REACTIONS (2)
  - DIARRHOEA [None]
  - PHARMACEUTICAL PRODUCT COMPLAINT [None]
